FAERS Safety Report 6301509-6 (Version None)
Quarter: 2009Q3

REPORT INFORMATION
  Report Type: 
  Country: None (occurrence: None)
  Receive Date: 20090807
  Receipt Date: 20090807
  Transmission Date: 20100115
  Serious: Yes (Life-Threatening)
  Sender: FDA-Public Use
  Company Number: B0586241A

PATIENT
  Age: 78 Year
  Sex: Female
  Weight: 59 kg

DRUGS (2)
  1. ARIXTRA [Suspect]
     Indication: VENOUS THROMBOSIS
     Route: 058
     Dates: start: 20090501, end: 20090501
  2. PREVISCAN [Suspect]
     Indication: VENOUS THROMBOSIS
     Dosage: 20MG UNKNOWN
     Route: 048

REACTIONS (11)
  - CHEST PAIN [None]
  - DEEP VEIN THROMBOSIS [None]
  - DYSPNOEA [None]
  - HAEMATOMA [None]
  - HAEMOGLOBIN DECREASED [None]
  - INTERNATIONAL NORMALISED RATIO DECREASED [None]
  - MUSCLE HAEMORRHAGE [None]
  - PELVIC HAEMATOMA [None]
  - PULMONARY EMBOLISM [None]
  - RENAL FAILURE [None]
  - THERAPEUTIC EMBOLISATION [None]
